FAERS Safety Report 8655312 (Version 2)
Quarter: 2014Q1

REPORT INFORMATION
  Report Type: Spontaneous
  Country: US (occurrence: US)
  Receive Date: 20120709
  Receipt Date: 20140210
  Transmission Date: 20141002
  Serious: Yes (Life-Threatening, Hospitalization, Other)
  Sender: FDA-Public Use
  Company Number: US-ASTRAZENECA-2012SE44622

PATIENT
  Age: 71 Year
  Sex: Female
  Weight: 66.7 kg

DRUGS (10)
  1. CRESTOR [Suspect]
     Indication: MYOCARDIAL INFARCTION
     Route: 048
  2. CRESTOR [Suspect]
     Indication: CEREBROVASCULAR ACCIDENT
     Route: 048
  3. LISINOPRIL [Suspect]
     Indication: HYPERTENSION
     Route: 048
  4. OMEPRAZOLE [Suspect]
     Indication: CEREBROVASCULAR ACCIDENT
     Route: 048
  5. BABY ASPIRIN [Concomitant]
     Indication: MYOCARDIAL INFARCTION
     Route: 048
  6. BABY ASPIRIN [Concomitant]
     Indication: CEREBROVASCULAR ACCIDENT
     Route: 048
  7. COUMADIN [Concomitant]
     Indication: CEREBROVASCULAR ACCIDENT
     Route: 048
     Dates: start: 201002
  8. SOTALOL [Concomitant]
     Indication: CEREBROVASCULAR ACCIDENT
     Route: 048
  9. FOLIC ACID [Concomitant]
     Route: 048
  10. PAXIL [Concomitant]
     Indication: HYPERTENSION
     Route: 048

REACTIONS (9)
  - Cardiac arrest [Unknown]
  - Lung neoplasm malignant [Unknown]
  - Cancer in remission [Unknown]
  - Dysarthria [Unknown]
  - Haemorrhage [Unknown]
  - Myocardial infarction [Unknown]
  - Cerebrovascular accident [Unknown]
  - Amnesia [Unknown]
  - Hypertension [Unknown]
